FAERS Safety Report 15706333 (Version 2)
Quarter: 2019Q1

REPORT INFORMATION
  Report Type: Spontaneous
  Country: US (occurrence: US)
  Receive Date: 20181210
  Receipt Date: 20190102
  Transmission Date: 20190417
  Serious: Yes (Other)
  Sender: FDA-Public Use
  Company Number: US-JNJFOC-20181204140

PATIENT
  Age: 35 Year
  Sex: Female

DRUGS (1)
  1. EVARREST [Suspect]
     Active Substance: FIBRINOGEN HUMAN\THROMBIN HUMAN
     Indication: HAEMOSTASIS
     Route: 061

REACTIONS (5)
  - Off label use [Unknown]
  - Asthma [Unknown]
  - Product use in unapproved indication [Unknown]
  - Urticaria [Recovered/Resolved]
  - Anaemia [Recovered/Resolved]
